FAERS Safety Report 8222190-5 (Version None)
Quarter: 2012Q1

REPORT INFORMATION
  Report Type: 
  Country: None (occurrence: None)
  Receive Date: 20120320
  Receipt Date: 20120309
  Transmission Date: 20120608
  Serious: Yes (Other)
  Sender: FDA-Public Use
  Company Number: IT-JNJFOC-20120305530

PATIENT

DRUGS (4)
  1. MORPHINE [Suspect]
     Indication: CANCER PAIN
     Route: 065
  2. OXYCODONE HCL [Suspect]
     Indication: CANCER PAIN
     Route: 065
  3. FENTANYL [Suspect]
     Indication: CANCER PAIN
     Route: 062
  4. HYDROMORPHONE HCL [Suspect]
     Indication: CANCER PAIN
     Route: 048

REACTIONS (10)
  - SOMNOLENCE [None]
  - DRUG INEFFECTIVE [None]
  - VERTIGO [None]
  - CONSTIPATION [None]
  - PRURITUS [None]
  - DELIRIUM [None]
  - HEADACHE [None]
  - NAUSEA [None]
  - HALLUCINATION [None]
  - VOMITING [None]
